FAERS Safety Report 22190506 (Version 1)
Quarter: 2023Q2

REPORT INFORMATION
  Report Type: Spontaneous
  Country: GB (occurrence: GB)
  Receive Date: 20230410
  Receipt Date: 20230410
  Transmission Date: 20230722
  Serious: Yes (Other)
  Sender: FDA-Public Use
  Company Number: None

PATIENT
  Age: 37 Year
  Sex: Male
  Weight: 105 kg

DRUGS (11)
  1. LISDEXAMFETAMINE DIMESYLATE [Suspect]
     Active Substance: LISDEXAMFETAMINE DIMESYLATE
     Indication: Product used for unknown indication
     Dosage: 30 MILLIGRAM
     Route: 065
     Dates: start: 20230324
  2. CODEINE PHOSPHATE [Concomitant]
     Active Substance: CODEINE PHOSPHATE
     Dosage: 1 DOSAGE FORM, QID
     Route: 065
     Dates: start: 20220926
  3. DIAZEPAM [Concomitant]
     Active Substance: DIAZEPAM
     Dosage: 6 MILLIGRAM
     Route: 065
     Dates: start: 20230210
  4. LISDEXAMFETAMINE DIMESYLATE [Concomitant]
     Active Substance: LISDEXAMFETAMINE DIMESYLATE
     Dosage: UNK, QD
     Route: 065
     Dates: start: 20230227, end: 20230327
  5. FEXOFENADINE [Concomitant]
     Active Substance: FEXOFENADINE HYDROCHLORIDE
     Dosage: UNK, BID
     Route: 065
     Dates: start: 20221104
  6. BECLOMETHASONE\FORMOTEROL [Concomitant]
     Active Substance: BECLOMETHASONE\FORMOTEROL
     Dosage: UNK, BID
     Route: 065
     Dates: start: 20220926
  7. MONTELUKAST [Concomitant]
     Active Substance: MONTELUKAST SODIUM
     Dosage: UNK, QD
     Route: 065
     Dates: start: 20220926
  8. OMEPRAZOLE [Concomitant]
     Active Substance: OMEPRAZOLE
     Dosage: UNK, QD
     Route: 065
     Dates: start: 20230303
  9. PREGABALIN [Concomitant]
     Active Substance: PREGABALIN
     Dosage: UNK, BID
     Route: 065
     Dates: start: 20220926
  10. SERTRALINE [Concomitant]
     Active Substance: SERTRALINE HYDROCHLORIDE
     Dosage: UNK, QD
     Route: 065
     Dates: start: 20220926
  11. SILDENAFIL [Concomitant]
     Active Substance: SILDENAFIL
     Dosage: UNK
     Route: 065
     Dates: start: 20220926

REACTIONS (8)
  - Serotonin syndrome [Recovering/Resolving]
  - Balance disorder [Recovering/Resolving]
  - Confusional state [Recovering/Resolving]
  - Nausea [Recovering/Resolving]
  - Vomiting [Recovering/Resolving]
  - Diarrhoea [Recovering/Resolving]
  - Tremor [Recovering/Resolving]
  - Tic [Recovering/Resolving]
